FAERS Safety Report 5120675-1 (Version None)
Quarter: 2006Q4

REPORT INFORMATION
  Report Type: 
  Country: None (occurrence: None)
  Receive Date: 20061004
  Receipt Date: 20050608
  Transmission Date: 20070319
  Serious: Yes (Death)
  Sender: FDA-Public Use
  Company Number: BR-BOEHRINGER INGELHEIM PHARMACEUTICALS, INC.-2005-BP-09603BR

PATIENT
  Sex: Male
  Weight: 52 kg

DRUGS (2)
  1. TIPRANAVIR / RITONAVIR CAPSULES (PRETREATMENT) [Suspect]
     Indication: HIV INFECTION
     Route: 048
  2. CLARITHROMYCIN [Suspect]
     Indication: PROPHYLAXIS
     Route: 048
     Dates: start: 20041119, end: 20041120

REACTIONS (1)
  - OESOPHAGITIS ULCERATIVE [None]
